FAERS Safety Report 4544039-4 (Version None)
Quarter: 2005Q1

REPORT INFORMATION
  Report Type: 
  Country: None (occurrence: None)
  Receive Date: 20050104
  Receipt Date: 20041007
  Transmission Date: 20050727
  Serious: Yes (Hospitalization)
  Sender: FDA-Public Use
  Company Number: DE-MERCK-0410DEU00234

PATIENT
  Age: 60 Year
  Sex: Female
  Weight: 67 kg

DRUGS (3)
  1. VIOXX [Suspect]
     Indication: ARTHRALGIA
     Route: 048
     Dates: start: 20020814, end: 20040730
  2. VITAMIN E [Concomitant]
     Route: 048
  3. ESOMEPRAZOLE MAGNESIUM [Concomitant]
     Route: 048

REACTIONS (1)
  - CEREBROVASCULAR ACCIDENT [None]
